FAERS Safety Report 6539260-X (Version None)
Quarter: 2010Q1

REPORT INFORMATION
  Report Type: 
  Country: None (occurrence: None)
  Receive Date: 20100115
  Receipt Date: 20100107
  Transmission Date: 20100710
  Serious: Yes (Other)
  Sender: FDA-Public Use
  Company Number: JP-JNJFOC-20100102489

PATIENT
  Age: 76 Year
  Sex: Male

DRUGS (6)
  1. DUROTEP MT PATCH [Suspect]
     Indication: CANCER PAIN
     Route: 062
  2. DUROTEP MT PATCH [Suspect]
     Route: 062
  3. DUROTEP MT PATCH [Suspect]
     Route: 062
  4. OXYCONTIN [Concomitant]
     Indication: CANCER PAIN
  5. ZYPREXA [Concomitant]
     Indication: PROPHYLAXIS OF NAUSEA AND VOMITING
  6. UNKNOWN MEDICATION [Concomitant]
     Indication: NEURALGIA

REACTIONS (2)
  - CONVULSION [None]
  - WRONG TECHNIQUE IN DRUG USAGE PROCESS [None]
